FAERS Safety Report 16527037 (Version 2)
Quarter: 2019Q3

REPORT INFORMATION
  Report Type: Spontaneous
  Country: US (occurrence: US)
  Receive Date: 20190703
  Receipt Date: 20190731
  Transmission Date: 20191004
  Serious: Yes (Other)
  Sender: FDA-Public Use
  Company Number: US-TEVA-2019-US-1070455

PATIENT
  Age: 4 Year
  Sex: Female

DRUGS (3)
  1. CICLESONIDE [Suspect]
     Active Substance: CICLESONIDE
     Indication: ASTHMA
     Route: 055
  2. FLUTICASONE. [Suspect]
     Active Substance: FLUTICASONE
     Indication: ASTHMA
     Route: 055
  3. HYDROCORTISONE. [Concomitant]
     Active Substance: HYDROCORTISONE
     Indication: ASTHMA
     Route: 048

REACTIONS (2)
  - Adrenal insufficiency [Recovered/Resolved]
  - Hypothalamic pituitary adrenal axis suppression [Recovered/Resolved]
